FAERS Safety Report 22592051 (Version 1)
Quarter: 2023Q2

REPORT INFORMATION
  Report Type: Report from Study
  Country: US (occurrence: US)
  Receive Date: 20230612
  Receipt Date: 20230612
  Transmission Date: 20230722
  Serious: Yes (Other)
  Sender: FDA-Public Use
  Company Number: US-ABBVIE-5285042

PATIENT
  Sex: Female

DRUGS (1)
  1. HUMIRA [Suspect]
     Active Substance: ADALIMUMAB
     Indication: Rheumatoid arthritis
     Route: 058
     Dates: start: 2020

REACTIONS (6)
  - Ischaemic stroke [Not Recovered/Not Resolved]
  - Arteritis [Unknown]
  - Memory impairment [Unknown]
  - Haemorrhagic stroke [Not Recovered/Not Resolved]
  - Loss of personal independence in daily activities [Unknown]
  - Illness [Unknown]
